FAERS Safety Report 25321650 (Version 1)
Quarter: 2025Q2

REPORT INFORMATION
  Report Type: Spontaneous
  Country: UA (occurrence: UA)
  Receive Date: 20250516
  Receipt Date: 20250516
  Transmission Date: 20250717
  Serious: Yes (Death, Hospitalization, Other)
  Sender: WOCKHARDT LIMITED
  Company Number: UA-WOCKHARDT LIMITED-2025WLD000042

PATIENT
  Age: 4 Year
  Sex: Female
  Weight: 20 kg

DRUGS (2)
  1. CEFTRIAXONE [Suspect]
     Active Substance: CEFTRIAXONE
     Indication: Bacterial infection
     Route: 030
  2. LIDOCAINE [Suspect]
     Active Substance: LIDOCAINE
     Indication: Product used for unknown indication
     Route: 030

REACTIONS (4)
  - Kounis syndrome [Fatal]
  - Sepsis [Fatal]
  - Toxic shock syndrome [Fatal]
  - Multiple organ dysfunction syndrome [Fatal]
